FAERS Safety Report 7617054 (Version 7)
Quarter: 2013Q1

REPORT INFORMATION
  Report Type: Spontaneous
  Country: JP (occurrence: JP)
  Receive Date: 20100921
  Receipt Date: 20130212
  Transmission Date: 20140127
  Serious: Yes (Life-Threatening)
  Sender: FDA-Public Use
  Company Number: JP-ACTELION-A-CH2010-39742

PATIENT
  Age: 23 Year
  Sex: Female
  Weight: 34 kg

DRUGS (12)
  1. TRACLEER [Suspect]
     Indication: PULMONARY ARTERIAL HYPERTENSION
     Dosage: 31.25 MG, BID
     Route: 048
     Dates: start: 20100906, end: 20100913
  2. TRACLEER [Suspect]
     Dosage: 62.5 MG, QD
     Route: 048
     Dates: start: 20100930, end: 20101002
  3. TORASEMIDE [Suspect]
     Dosage: UNK
     Dates: start: 20100907, end: 20100913
  4. CEFOTIAM HYDROCHLORIDE [Suspect]
     Indication: VAGINITIS BACTERIAL
     Dosage: UNK
     Dates: start: 20100906, end: 20100910
  5. EPOPROSTENOL SODIUM [Concomitant]
     Dosage: UNK
     Dates: start: 20100906
  6. BERAPROST SODIUM [Concomitant]
  7. CARBOCISTEINE [Concomitant]
  8. REBAMIPIDE [Concomitant]
  9. MAGNESIUM OXIDE [Concomitant]
  10. DOPAMINE [Concomitant]
  11. DOBUTAMINE HYDROCHLORIDE [Concomitant]
  12. PIPERACILLIN W/TAZOBACTAM [Concomitant]

REACTIONS (8)
  - Ventricular tachycardia [Recovered/Resolved]
  - Torsade de pointes [Recovered/Resolved]
  - Electrocardiogram QT prolonged [Recovering/Resolving]
  - Nervousness [Recovered/Resolved]
  - Ventricular extrasystoles [Recovered/Resolved]
  - Hepatic function abnormal [Recovered/Resolved]
  - Aspartate aminotransferase increased [Recovered/Resolved]
  - Alanine aminotransferase increased [Recovered/Resolved]
